FAERS Safety Report 14700055 (Version 1)
Quarter: 2018Q1

REPORT INFORMATION
  Report Type: Report from Study
  Country: US (occurrence: US)
  Receive Date: 20180330
  Receipt Date: 20180330
  Transmission Date: 20180509
  Serious: Yes (Death, Hospitalization, Other)
  Sender: FDA-Public Use
  Company Number: US-AMGEN-USACT2018041476

PATIENT
  Age: 60 Year
  Sex: Female

DRUGS (6)
  1. BLINATUMOMAB [Suspect]
     Active Substance: BLINATUMOMAB
     Dosage: 112 MCG, QD
     Route: 042
     Dates: end: 20170424
  2. BLINATUMOMAB [Suspect]
     Active Substance: BLINATUMOMAB
     Indication: NON-HODGKIN^S LYMPHOMA
     Dosage: 9 MCG, QD
     Route: 042
  3. BRENTUXIMAB [Suspect]
     Active Substance: BRENTUXIMAB VEDOTIN
     Indication: NON-HODGKIN^S LYMPHOMA
     Route: 042
  4. BLINATUMOMAB [Suspect]
     Active Substance: BLINATUMOMAB
     Dosage: 28 MCG, QD
     Route: 042
  5. LENALIDOMIDE [Suspect]
     Active Substance: LENALIDOMIDE
     Indication: NON-HODGKIN^S LYMPHOMA
     Dosage: 10 MG, UNK
     Route: 048
  6. DEXAMETHASONE. [Suspect]
     Active Substance: DEXAMETHASONE
     Indication: NON-HODGKIN^S LYMPHOMA
     Dosage: 8 MG, TID
     Route: 065
     Dates: start: 20170420

REACTIONS (3)
  - Hyponatraemia [Unknown]
  - Sepsis [Fatal]
  - Cognitive disorder [Unknown]

NARRATIVE: CASE EVENT DATE: 20170509
